FAERS Safety Report 6121463-X (Version None)
Quarter: 2009Q1

REPORT INFORMATION
  Report Type: 
  Country: None (occurrence: None)
  Receive Date: 20090317
  Receipt Date: 20090308
  Transmission Date: 20090719
  Serious: Yes (Other)
  Sender: FDA-Public Use
  Company Number: PHEH2009US02431

PATIENT
  Sex: Female
  Weight: 61.224 kg

DRUGS (4)
  1. FEMARA [Suspect]
  2. CALCIUM [Concomitant]
  3. VITAMIN D [Concomitant]
  4. POTASSIUM CHLORIDE [Concomitant]

REACTIONS (6)
  - BONE DISORDER [None]
  - BREAST CANCER [None]
  - DEAFNESS [None]
  - DIZZINESS [None]
  - MUSCULAR WEAKNESS [None]
  - TINNITUS [None]
